FAERS Safety Report 7901575-8 (Version None)
Quarter: 2011Q4

REPORT INFORMATION
  Report Type: 
  Country: None (occurrence: None)
  Receive Date: 20111108
  Receipt Date: 20110721
  Transmission Date: 20120403
  Serious: No
  Sender: FDA-Public Use
  Company Number: US-BAYER-2011-065421

PATIENT
  Age: 60 Year
  Sex: Female
  Weight: 58.957 kg

DRUGS (6)
  1. PREMARIN [Concomitant]
  2. NAPROXEN (ALEVE) [Suspect]
     Indication: RHEUMATOID ARTHRITIS
     Dosage: 2 DF, BID
     Route: 048
  3. ALDACTAZIDE [Concomitant]
  4. LOVAZA [Concomitant]
  5. CALCIUM [Concomitant]
  6. LOTREL [Concomitant]

REACTIONS (1)
  - NO ADVERSE EVENT [None]
